FAERS Safety Report 6274524-9 (Version None)
Quarter: 2009Q3

REPORT INFORMATION
  Report Type: 
  Country: None (occurrence: None)
  Receive Date: 20090720
  Receipt Date: 20090710
  Transmission Date: 20100115
  Serious: Yes (Hospitalization)
  Sender: FDA-Public Use
  Company Number: CH-MERCK-0907CHE00007

PATIENT
  Age: 70 Year
  Sex: Female
  Weight: 67 kg

DRUGS (10)
  1. HYZAAR [Suspect]
     Indication: HYPERTENSION
     Route: 048
     Dates: start: 20081001, end: 20090612
  2. PHENPROCOUMON [Suspect]
     Indication: ATRIAL FIBRILLATION
     Route: 048
     Dates: end: 20090612
  3. ANGELICA AND BITTER CANDYTUFT AND CARAWAY AND CELANDINE AND CHAMOMILE [Suspect]
     Indication: IRRITABLE BOWEL SYNDROME
     Route: 048
     Dates: start: 20090501, end: 20090612
  4. BISOPROLOL FUMARATE [Suspect]
     Indication: HYPERTENSION
     Route: 048
     Dates: start: 20081001, end: 20090612
  5. BISOPROLOL FUMARATE [Suspect]
     Indication: ATRIAL FIBRILLATION
     Route: 048
     Dates: start: 20081001, end: 20090612
  6. LATANOPROST [Concomitant]
     Route: 047
  7. CARBOMER AND GLYCERIN AND HYALURONATE SODIUM [Concomitant]
     Route: 047
  8. ASCORBIC ACID AND COPPER SULFATE AND OMEGA-3 MARINE TRIGLYCERIDES AND [Concomitant]
     Route: 048
     Dates: end: 20090612
  9. NORFLOXACIN [Concomitant]
     Route: 048
     Dates: start: 20090609, end: 20090612
  10. OLOPATADINE HYDROCHLORIDE [Concomitant]
     Route: 047

REACTIONS (1)
  - HEPATITIS CHOLESTATIC [None]
